FAERS Safety Report 9422215 (Version 2)
Quarter: 2013Q3

REPORT INFORMATION
  Report Type: Spontaneous
  Country: CA (occurrence: CA)
  Receive Date: 20130726
  Receipt Date: 20130911
  Transmission Date: 20140515
  Serious: Yes (Other)
  Sender: FDA-Public Use
  Company Number: CA-PFIZER INC-2013214516

PATIENT
  Age: 79 Year
  Sex: Male

DRUGS (1)
  1. DEPO-MEDROL [Suspect]
     Route: 008

REACTIONS (1)
  - Meningitis bacterial [Not Recovered/Not Resolved]
